FAERS Safety Report 8578664-0 (Version None)
Quarter: 2012Q3

REPORT INFORMATION
  Report Type: 
  Country: None (occurrence: None)
  Receive Date: 20120808
  Receipt Date: 20120730
  Transmission Date: 20120928
  Serious: Yes (Hospitalization, Other)
  Sender: FDA-Public Use
  Company Number: JP-VERTEX PHARMACEUTICALS INC.-AE-2012-011481

PATIENT
  Age: 68 Year
  Sex: Male

DRUGS (12)
  1. REBETOL [Concomitant]
     Route: 048
     Dates: start: 20120426, end: 20120516
  2. TELAVIC (TELAPREVIR) [Suspect]
     Indication: HEPATITIS C
     Route: 048
     Dates: start: 20120426, end: 20120628
  3. TALION [Concomitant]
     Route: 048
     Dates: start: 20120628
  4. PRIMPERAN TAB [Concomitant]
     Route: 048
     Dates: start: 20120426, end: 20120628
  5. RABEPRAZOLE SODIUM [Concomitant]
     Route: 048
     Dates: start: 20120426
  6. TALION [Concomitant]
     Route: 048
     Dates: start: 20120426
  7. PEG-INTRON [Concomitant]
     Route: 058
     Dates: start: 20120426, end: 20120501
  8. REBETOL [Concomitant]
     Route: 048
     Dates: start: 20120517, end: 20120628
  9. PEG-INTRON [Concomitant]
     Route: 058
     Dates: start: 20120502, end: 20120530
  10. PEG-INTRON [Concomitant]
     Route: 058
     Dates: start: 20120530
  11. PEG-INTRON [Concomitant]
     Route: 058
     Dates: start: 20120614, end: 20120622
  12. RABEPRAZOLE SODIUM [Concomitant]
     Route: 048
     Dates: start: 20120426

REACTIONS (1)
  - BONE MARROW FAILURE [None]
